FAERS Safety Report 9720076 (Version 2)
Quarter: 2013Q4

REPORT INFORMATION
  Report Type: Spontaneous
  Country: US (occurrence: US)
  Receive Date: 20131128
  Receipt Date: 20131204
  Transmission Date: 20140711
  Serious: Yes (Disabling)
  Sender: FDA-Public Use
  Company Number: CHPA2013US017360

PATIENT
  Age: 70 Year
  Sex: Female

DRUGS (4)
  1. VOLTAREN GEL [Suspect]
     Indication: ARTHRITIS
     Dosage: UNK, UNK
     Route: 061
  2. VOLTAREN GEL [Suspect]
     Indication: NEUROPATHY PERIPHERAL
     Dosage: OVER 1 G PER FOOT, QID
     Route: 061
     Dates: start: 20131018
  3. VOLTAREN GEL [Suspect]
     Indication: OFF LABEL USE
     Dosage: 4 G TO LEFT LEG, QID
     Route: 061
     Dates: start: 20131018
  4. LEVOTHYROXINE [Concomitant]
     Dosage: UNK
     Route: 065
     Dates: start: 20131024

REACTIONS (6)
  - Abasia [Recovering/Resolving]
  - Intervertebral disc disorder [Recovering/Resolving]
  - Back pain [Recovering/Resolving]
  - Neuralgia [Recovering/Resolving]
  - Walking aid user [Recovering/Resolving]
  - Drug administered at inappropriate site [Unknown]
